FAERS Safety Report 18596382 (Version 1)
Quarter: 2020Q4

REPORT INFORMATION
  Report Type: Report from Study
  Country: US (occurrence: US)
  Receive Date: 20201209
  Receipt Date: 20201209
  Transmission Date: 20210114
  Serious: Yes (Other)
  Sender: FDA-Public Use
  Company Number: US-PFIZER INC-2020425148

PATIENT
  Age: 55 Year
  Sex: Female

DRUGS (1)
  1. ENBREL [Suspect]
     Active Substance: ETANERCEPT
     Indication: RHEUMATOID ARTHRITIS
     Dosage: 50 MILLIGRAM, QWK
     Route: 065

REACTIONS (10)
  - Injection site erythema [Unknown]
  - Tenderness [Recovering/Resolving]
  - Arthropod sting [Recovering/Resolving]
  - Pain in extremity [Recovering/Resolving]
  - Erythema [Recovering/Resolving]
  - Infected bite [Recovering/Resolving]
  - Injection site swelling [Unknown]
  - Injection site pruritus [Unknown]
  - Swelling [Recovering/Resolving]
  - Induration [Recovering/Resolving]

NARRATIVE: CASE EVENT DATE: 202010
